FAERS Safety Report 7594800-7 (Version None)
Quarter: 2011Q2

REPORT INFORMATION
  Report Type: 
  Country: None (occurrence: None)
  Receive Date: 20110615
  Receipt Date: 20110422
  Transmission Date: 20111010
  Serious: Yes (Hospitalization)
  Sender: FDA-Public Use
  Company Number: DSA_45453_2011

PATIENT
  Age: 64 Year
  Sex: Female

DRUGS (3)
  1. WELLBUTRIN XL [Concomitant]
  2. XENAZINE [Suspect]
     Indication: PRODUCT USED FOR UNKNOWN INDICATION
     Dosage: (12.5 MG TID ORAL), (DF ORAL)
     Route: 048
     Dates: start: 20100401
  3. ACIPHEX [Concomitant]

REACTIONS (2)
  - DEPRESSION [None]
  - HEADACHE [None]
